FAERS Safety Report 12555990 (Version 1)
Quarter: 2016Q3

REPORT INFORMATION
  Report Type: Spontaneous
  Country: US (occurrence: None)
  Receive Date: 20160713
  Receipt Date: 20160713
  Transmission Date: 20161109
  Serious: Yes (Disabling)
  Sender: FDA-Public Use
  Company Number: None

PATIENT
  Age: 60 Year
  Sex: Female
  Weight: 57.15 kg

DRUGS (9)
  1. VITAMIN D [Concomitant]
     Active Substance: CHOLECALCIFEROL
  2. ZOLOFT [Concomitant]
     Active Substance: SERTRALINE HYDROCHLORIDE
  3. VITAMIN C [Concomitant]
     Active Substance: ASCORBIC ACID
  4. BOTOX [Suspect]
     Active Substance: ONABOTULINUMTOXINA
     Indication: NECK PAIN
     Dosage: SHOTS?START DATE GIVEN 02-1916
  5. TYLENOL [Concomitant]
     Active Substance: ACETAMINOPHEN
  6. CLONIDINE. [Concomitant]
     Active Substance: CLONIDINE
  7. VITAMIN B COMPLEX [Concomitant]
     Active Substance: CYANOCOBALAMIN\DEXPANTHENOL\NIACINAMIDE\PYRIDOXINE HYDROCHLORIDE\RIBOFLAVIN 5^-PHOSPHATE SODIUM\THIAMINE HYDROCHLORIDE\VITAMIN B COMPLEX
  8. KLONOPIN [Concomitant]
     Active Substance: CLONAZEPAM
  9. MULTI 1 A DAY [Concomitant]

REACTIONS (7)
  - Headache [None]
  - Eye disorder [None]
  - Neck pain [None]
  - Musculoskeletal pain [None]
  - Dizziness [None]
  - Dyskinesia [None]
  - Vision blurred [None]

NARRATIVE: CASE EVENT DATE: 191602
